FAERS Safety Report 18471560 (Version 9)
Quarter: 2022Q1

REPORT INFORMATION
  Report Type: Report from Study
  Country: GB (occurrence: GB)
  Receive Date: 20201106
  Receipt Date: 20220214
  Transmission Date: 20220423
  Serious: Yes (Other)
  Sender: FDA-Public Use
  Company Number: GB-EMA-DD-20201023-BHARDWAJ_R-115807

PATIENT
  Age: 41 Year
  Sex: Male

DRUGS (10)
  1. MIDAZOLAM [Suspect]
     Active Substance: MIDAZOLAM
     Indication: Drug level
     Dosage: 1 MILLIGRAM, UNK, 1MG/ML, SOLUTION FOR INJECTION OR INFUSION
     Route: 042
     Dates: start: 20200827, end: 20200827
  2. MIDAZOLAM [Suspect]
     Active Substance: MIDAZOLAM
     Indication: Seizure
     Dosage: 1 MILLIGRAM, 1MG/ML, SOLUTION FOR INJECTION OR INFUSION
     Route: 042
     Dates: start: 20200909, end: 20200909
  3. MIDAZOLAM [Suspect]
     Active Substance: MIDAZOLAM
     Indication: Drug level
     Dosage: 1 MILLIGRAM
     Route: 042
     Dates: start: 20200809, end: 20200809
  4. MIDAZOLAM [Suspect]
     Active Substance: MIDAZOLAM
     Dosage: 1MG, 1 MILLIGRAM
     Route: 042
     Dates: start: 20200827, end: 20200927
  5. MIDAZOLAM [Suspect]
     Active Substance: MIDAZOLAM
     Dosage: 1 MG, 1 MILLIGRAM
     Route: 042
     Dates: start: 20200906, end: 20200906
  6. NABIXIMOLS [Suspect]
     Active Substance: NABIXIMOLS
     Indication: Drug level
     Dosage: 27/25 MG/ML, 6 ACTUATIONS TWICE DAILY
     Route: 002
     Dates: start: 20200828, end: 20200909
  7. NABIXIMOLS [Suspect]
     Active Substance: NABIXIMOLS
     Indication: Drug level
     Route: 002
  8. MIDAZOLAM [Suspect]
     Active Substance: MIDAZOLAM
     Indication: Drug level
     Dosage: 2.5 MILLIGRAM, UNK
     Route: 048
     Dates: start: 20200825, end: 20200825
  9. MIDAZOLAM [Suspect]
     Active Substance: MIDAZOLAM
     Indication: Drug level
     Dosage: 2.5 MILLIGRAM, UNK
     Route: 048
     Dates: start: 20200907, end: 20200907
  10. MIDAZOLAM [Suspect]
     Active Substance: MIDAZOLAM
     Dosage: 2.5 MG
     Route: 048

REACTIONS (18)
  - Memory impairment [Recovered/Resolved]
  - Depressed level of consciousness [Recovered/Resolved]
  - Limb discomfort [Recovered/Resolved]
  - Paraesthesia [Unknown]
  - Gait disturbance [Unknown]
  - Bruxism [Unknown]
  - Arthralgia [Unknown]
  - Pain in extremity [Unknown]
  - Dry mouth [Unknown]
  - Balance disorder [Unknown]
  - Paraesthesia [Recovered/Resolved]
  - Product use issue [Unknown]
  - Dizziness [Recovered/Resolved]
  - Dizziness [Recovered/Resolved]
  - Product use in unapproved indication [Unknown]
  - Product use issue [Unknown]
  - Underdose [Unknown]
  - Feeling abnormal [Unknown]

NARRATIVE: CASE EVENT DATE: 20200825
